FAERS Safety Report 20599122 (Version 1)
Quarter: 2022Q1

REPORT INFORMATION
  Report Type: Spontaneous
  Country: US (occurrence: US)
  Receive Date: 20220315
  Receipt Date: 20220315
  Transmission Date: 20220423
  Serious: No
  Sender: FDA-Public Use
  Company Number: US-SA-SAC20220309001333

PATIENT
  Age: 13 Year
  Sex: Female
  Weight: 51.98 kg

DRUGS (3)
  1. DUPIXENT [Suspect]
     Active Substance: DUPILUMAB
     Indication: Product used for unknown indication
     Route: 058
     Dates: start: 202109
  2. ONDANSETRON [Suspect]
     Active Substance: ONDANSETRON
     Indication: Gastritis
  3. FAMOTIDINE [Concomitant]
     Active Substance: FAMOTIDINE
     Route: 048

REACTIONS (6)
  - COVID-19 [Recovered/Resolved]
  - Headache [Unknown]
  - Gastritis [Unknown]
  - Vomiting [Unknown]
  - Nausea [Unknown]
  - Ulcer [Unknown]

NARRATIVE: CASE EVENT DATE: 20220101
